FAERS Safety Report 25354013 (Version 1)
Quarter: 2025Q2

REPORT INFORMATION
  Report Type: Spontaneous
  Country: US (occurrence: US)
  Receive Date: 20250523
  Receipt Date: 20250523
  Transmission Date: 20250716
  Serious: No
  Sender: SANOFI AVENTIS
  Company Number: US-SA-2025SA146987

PATIENT
  Age: 59 Year
  Sex: Female

DRUGS (3)
  1. DUPIXENT [Suspect]
     Active Substance: DUPILUMAB
     Indication: Dermatitis atopic
     Route: 058
     Dates: start: 202409, end: 202409
  2. DUPIXENT [Suspect]
     Active Substance: DUPILUMAB
     Dosage: 300 MG, QOW
     Route: 058
  3. ORENCIA [Concomitant]
     Active Substance: ABATACEPT

REACTIONS (5)
  - Cardiac disorder [Unknown]
  - Emotional disorder [Unknown]
  - Mood altered [Unknown]
  - Nasal congestion [Unknown]
  - Eczema [Unknown]

NARRATIVE: CASE EVENT DATE: 20250501
